FAERS Safety Report 6502084-3 (Version None)
Quarter: 2009Q4

REPORT INFORMATION
  Report Type: 
  Country: None (occurrence: None)
  Receive Date: 20091214
  Receipt Date: 20091201
  Transmission Date: 20100525
  Serious: Yes (Death, Hospitalization, Disabling)
  Sender: FDA-Public Use
  Company Number: A-CH2009-24932

PATIENT
  Age: 66 Year
  Sex: Female
  Weight: 58.3 kg

DRUGS (10)
  1. TRACLEER [Suspect]
     Indication: SKIN ULCER
     Dosage: 62.5 MG, BID, ORAL
     Route: 048
     Dates: start: 20090220, end: 20090402
  2. HYDROCORTISONE [Concomitant]
  3. ISOPTIN [Concomitant]
  4. RAMIPRIL [Concomitant]
  5. COUMADIN [Concomitant]
  6. LASIX [Concomitant]
  7. ILOPROST [Concomitant]
  8. ANALGESICS [Concomitant]
  9. ANTIBIOTICS [Concomitant]
  10. ENZYME INHIBITORS [Concomitant]

REACTIONS (6)
  - DISEASE PROGRESSION [None]
  - HYPOTENSION [None]
  - PULMONARY ARTERIAL HYPERTENSION [None]
  - PULMONARY OEDEMA [None]
  - PULMONARY VENO-OCCLUSIVE DISEASE [None]
  - RIGHT VENTRICULAR FAILURE [None]
